FAERS Safety Report 13162925 (Version 1)
Quarter: 2017Q1

REPORT INFORMATION
  Report Type: Spontaneous
  Country: US (occurrence: US)
  Receive Date: 20170127
  Receipt Date: 20170127
  Transmission Date: 20170428
  Serious: Yes (Life-Threatening, Hospitalization, Other)
  Sender: FDA-Public Use
  Company Number: None

PATIENT
  Age: 21 Year
  Sex: Female
  Weight: 83.25 kg

DRUGS (1)
  1. REMICADE [Suspect]
     Active Substance: INFLIXIMAB
     Indication: BEHCET^S SYNDROME
     Dosage: ?          OTHER FREQUENCY:EVERY 8 WEEKS;?
     Route: 041
     Dates: start: 20170127, end: 20170127

REACTIONS (6)
  - Chest pain [None]
  - Postictal state [None]
  - Heart rate increased [None]
  - Flushing [None]
  - Generalised tonic-clonic seizure [None]
  - Vomiting [None]

NARRATIVE: CASE EVENT DATE: 20170127
